FAERS Safety Report 13162881 (Version 2)
Quarter: 2017Q1

REPORT INFORMATION
  Report Type: Spontaneous
  Country: US (occurrence: US)
  Receive Date: 20170130
  Receipt Date: 20170203
  Transmission Date: 20170428
  Serious: Yes (Hospitalization)
  Sender: FDA-Public Use
  Company Number: US-HORIZON-DUE-0017-2017

PATIENT
  Age: 68 Year
  Sex: Female

DRUGS (3)
  1. CYCLOBENZAPRINE [Concomitant]
     Active Substance: CYCLOBENZAPRINE
     Dosage: AS NEEDED
  2. DUEXIS [Suspect]
     Active Substance: FAMOTIDINE\IBUPROFEN
     Indication: ARTHRITIS
     Dosage: 3 PILLS DAILY AS NEEDED
     Dates: start: 201610, end: 201701
  3. TYLENOL [Concomitant]
     Active Substance: ACETAMINOPHEN

REACTIONS (7)
  - Headache [Not Recovered/Not Resolved]
  - Nasal discomfort [Recovered/Resolved]
  - Intentional product misuse [Unknown]
  - Pruritus [Not Recovered/Not Resolved]
  - Pain in extremity [Recovering/Resolving]
  - Visual impairment [Not Recovered/Not Resolved]
  - Abdominal pain [Recovering/Resolving]

NARRATIVE: CASE EVENT DATE: 201701
